FAERS Safety Report 18215511 (Version 3)
Quarter: 2020Q3

REPORT INFORMATION
  Report Type: Spontaneous
  Country: US (occurrence: US)
  Receive Date: 20200831
  Receipt Date: 20200924
  Transmission Date: 20201103
  Serious: Yes (Death, Life-Threatening, Hospitalization, Other)
  Sender: FDA-Public Use
  Company Number: US-GILEAD-2020-0492828

PATIENT
  Age: 67 Year
  Sex: Female
  Weight: 71.8 kg

DRUGS (28)
  1. ZINC ACETATE [Concomitant]
     Active Substance: ZINC ACETATE
     Dosage: 500 MG, QD
     Route: 048
     Dates: start: 20200823
  2. CARBAMAZEPINE. [Concomitant]
     Active Substance: CARBAMAZEPINE
     Indication: SEIZURE
     Dosage: 300 MG, TID
     Route: 048
     Dates: start: 20200824
  3. REMDESIVIR. [Suspect]
     Active Substance: REMDESIVIR
     Indication: COVID-19
     Dosage: 200 MG, ONCE
     Route: 041
     Dates: start: 20200824, end: 20200824
  4. LORAZEPAM. [Concomitant]
     Active Substance: LORAZEPAM
     Indication: ANXIETY
     Dosage: 0.5MG HSPRN
     Route: 048
     Dates: start: 20200825, end: 20200825
  5. FAMOTIDINE. [Concomitant]
     Active Substance: FAMOTIDINE
     Dosage: 20 MG, QD
     Route: 048
     Dates: start: 20200825, end: 20200829
  6. LAMOTRIGINE. [Concomitant]
     Active Substance: LAMOTRIGINE
     Indication: SEIZURE
     Dosage: 100 MG, QD
     Route: 048
     Dates: start: 20200824
  7. METOPROLOL TARTRATE. [Concomitant]
     Active Substance: METOPROLOL TARTRATE
     Indication: ATRIAL FIBRILLATION
     Dosage: 10 MG, ONCE
     Route: 042
     Dates: start: 20200824, end: 20200824
  8. SEVELAMER [Concomitant]
     Active Substance: SEVELAMER
     Indication: HYPERPHOSPHATAEMIA
     Dosage: 800 MG, TID
     Route: 048
     Dates: start: 20200901, end: 20200902
  9. POTASSIUM PHOSPHATE [POTASSIUM PHOSPHATE DIBASIC] [Concomitant]
  10. GUAIFENESIN. [Concomitant]
     Active Substance: GUAIFENESIN
     Indication: COUGH
     Dosage: 600 MG, BID
     Route: 048
     Dates: start: 20200823
  11. ENOXAPARIN [Concomitant]
     Active Substance: ENOXAPARIN
     Indication: FIBRIN D DIMER INCREASED
     Dosage: 80 MG, BID
     Route: 058
     Dates: start: 20200824, end: 20200830
  12. HEPARIN [Concomitant]
     Active Substance: HEPARIN SODIUM
     Indication: FIBRIN D DIMER INCREASED
     Dosage: 600?1050 UNIT/HR
     Route: 042
     Dates: start: 20200830
  13. RED BLOOD CELLS [Concomitant]
     Active Substance: HUMAN RED BLOOD CELL
  14. MULTIVITAMINS;MINERALS [Concomitant]
     Indication: HYPOVITAMINOSIS
     Dosage: 1 TAB DAILY
     Route: 048
     Dates: start: 20200824
  15. CALCIUM CARBONATE. [Concomitant]
     Active Substance: CALCIUM CARBONATE
     Indication: CALCIUM DEFICIENCY
     Dosage: 500 MG, QD
     Route: 048
     Dates: start: 20200824
  16. ACETAMINOPHEN. [Concomitant]
     Active Substance: ACETAMINOPHEN
     Indication: PYREXIA
     Dosage: 650 MG AS NEEDED
     Route: 054
     Dates: start: 20200826
  17. BENZONATATE. [Concomitant]
     Active Substance: BENZONATATE
     Dosage: 200 MG, TID PRN
     Route: 048
     Dates: start: 20200825
  18. DEXAMETHASONE. [Concomitant]
     Active Substance: DEXAMETHASONE
     Indication: COVID-19
     Dosage: 6 MG, QD
     Route: 042
     Dates: start: 20200824
  19. PROPOFOL. [Concomitant]
     Active Substance: PROPOFOL
     Indication: SEDATION
     Dosage: 20?40 MCG/KG/MIN
     Route: 042
     Dates: start: 20200827
  20. VITAMIN D3 [Concomitant]
     Active Substance: CHOLECALCIFEROL
     Indication: HYPOVITAMINOSIS
     Dosage: 2000 UNITS
     Route: 048
     Dates: start: 20200823
  21. OLANZAPINE. [Concomitant]
     Active Substance: OLANZAPINE
     Indication: AGITATION
     Dosage: 5 MG HS PRN
     Route: 030
     Dates: start: 20200826, end: 20200826
  22. OLANZAPINE. [Concomitant]
     Active Substance: OLANZAPINE
     Indication: DELIRIUM
  23. AZITHROMYCIN ANHYDROUS. [Concomitant]
     Active Substance: AZITHROMYCIN ANHYDROUS
     Indication: UPPER RESPIRATORY TRACT INFECTION
     Dosage: UNK
  24. CEFTRIAXONE. [Concomitant]
     Active Substance: CEFTRIAXONE
     Indication: PNEUMONIA
     Dosage: 2 G, QD
     Route: 042
     Dates: start: 20200826, end: 20200829
  25. INSULIN ASPART [Concomitant]
     Active Substance: INSULIN ASPART
  26. REMDESIVIR. [Suspect]
     Active Substance: REMDESIVIR
     Dosage: 100 MG, QD
     Route: 042
     Dates: start: 20200825, end: 20200827
  27. DILTIAZEM. [Concomitant]
     Active Substance: DILTIAZEM
     Indication: ATRIAL FIBRILLATION
     Dosage: 10 MG, ONCE
     Route: 042
     Dates: start: 20200824, end: 20200824
  28. EPOPROSTENOL [EPOPROSTENOL SODIUM] [Concomitant]
     Active Substance: EPOPROSTENOL SODIUM
     Dosage: 2NG/KG/MIN
     Route: 042
     Dates: start: 20200901

REACTIONS (9)
  - COVID-19 pneumonia [Fatal]
  - Cardio-respiratory arrest [Recovered/Resolved]
  - Atrial fibrillation [Recovered/Resolved]
  - Respiratory acidosis [Not Recovered/Not Resolved]
  - Acute kidney injury [Not Recovered/Not Resolved]
  - Dehydration [Recovered/Resolved]
  - Hyperphosphataemia [Recovered/Resolved]
  - Cardio-respiratory arrest [Unknown]
  - Septic shock [Not Recovered/Not Resolved]

NARRATIVE: CASE EVENT DATE: 20200827
